FAERS Safety Report 7027422 (Version 8)
Quarter: 2017Q2

REPORT INFORMATION
  Report Type: Spontaneous
  Country: US (occurrence: US)
  Receive Date: 20090618
  Receipt Date: 20170410
  Transmission Date: 20170830
  Serious: Yes (Other)
  Sender: FDA-Public Use
  Company Number: US-ELI_LILLY_AND_COMPANY-US200906003211

PATIENT
  Age: 70 Year
  Sex: Male

DRUGS (8)
  1. HUMALOG [Suspect]
     Active Substance: INSULIN LISPRO
     Indication: TYPE 1 DIABETES MELLITUS
     Dosage: UNK UNK, TID
     Route: 065
  2. METFORMIN [Concomitant]
     Active Substance: METFORMIN HYDROCHLORIDE
     Dosage: UNK
     Dates: end: 1998
  3. HUMALOG [Suspect]
     Active Substance: INSULIN LISPRO
     Indication: TYPE 1 DIABETES MELLITUS
     Dosage: 20 U, PRN
     Route: 065
     Dates: start: 2004
  4. RAMIPRIL. [Concomitant]
     Active Substance: RAMIPRIL
  5. HUMALOG MIX75/25 [Suspect]
     Active Substance: INSULIN LISPRO
     Indication: TYPE 1 DIABETES MELLITUS
     Dosage: UNK, UNK
     Route: 065
  6. GLUCOPHAGE [Concomitant]
     Active Substance: METFORMIN HYDROCHLORIDE
  7. HUMALOG [Suspect]
     Active Substance: INSULIN LISPRO
     Dosage: 32 U, TID
     Route: 065
  8. HUMALOG MIX50/50 [Suspect]
     Active Substance: INSULIN LISPRO
     Indication: TYPE 1 DIABETES MELLITUS
     Dosage: UNK, UNK

REACTIONS (22)
  - Blood glucose increased [Recovered/Resolved]
  - Cataract [Not Recovered/Not Resolved]
  - End stage renal disease [Not Recovered/Not Resolved]
  - Catheter site haemorrhage [Unknown]
  - Glycosylated haemoglobin decreased [Unknown]
  - Loss of consciousness [Recovered/Resolved]
  - Cardiac failure [Unknown]
  - Haemorrhage [Unknown]
  - Parathyroid disorder [Unknown]
  - Hypoglycaemia [Recovered/Resolved]
  - Osteoporosis [Unknown]
  - Blindness transient [Recovered/Resolved]
  - Anaemia [Not Recovered/Not Resolved]
  - Maculopathy [Not Recovered/Not Resolved]
  - Prostatomegaly [Unknown]
  - Pancreatic disorder [Unknown]
  - Visual impairment [Not Recovered/Not Resolved]
  - Diabetic retinopathy [Not Recovered/Not Resolved]
  - Visual impairment [Unknown]
  - Prostate cancer [Recovered/Resolved]
  - Urinary incontinence [Unknown]
  - Underweight [Not Recovered/Not Resolved]

NARRATIVE: CASE EVENT DATE: 2001
